FAERS Safety Report 9196427 (Version 2)
Quarter: 2013Q2

REPORT INFORMATION
  Report Type: Spontaneous
  Country: JP (occurrence: JP)
  Receive Date: 20130328
  Receipt Date: 20130516
  Transmission Date: 20140414
  Serious: Yes (Hospitalization)
  Sender: FDA-Public Use
  Company Number: JP-PFIZER INC-2013100219

PATIENT
  Age: 86 Year
  Sex: Male

DRUGS (8)
  1. ZOSYN [Suspect]
     Indication: PSOAS ABSCESS
     Dosage: 2.25 G, 3X/DAY
     Route: 041
     Dates: start: 20130308, end: 20130315
  2. CLARITHROMYCIN [Concomitant]
     Dosage: 400 MG, 1X/DAY
     Route: 048
     Dates: start: 20130306
  3. OPISEZOL-CODEINE [Concomitant]
     Indication: ANTITUSSIVE THERAPY
     Dosage: UNK
     Route: 048
     Dates: start: 20130306
  4. OPISEZOL-CODEINE [Concomitant]
     Indication: PRODUCTIVE COUGH
  5. HUSTAZOL [Concomitant]
     Dosage: 6 TAB/DAY
     Route: 048
     Dates: start: 20130306
  6. MUCODYNE [Concomitant]
     Dosage: 3 TAB/DAY
     Route: 048
     Dates: start: 20130306
  7. NEUFAN [Concomitant]
     Dosage: UNK
     Route: 048
  8. THYRADIN [Concomitant]
     Dosage: UNK
     Route: 048

REACTIONS (1)
  - Blood creatine phosphokinase increased [Recovered/Resolved]
